FAERS Safety Report 11428840 (Version 1)
Quarter: 2015Q3

REPORT INFORMATION
  Report Type: Spontaneous
  Country: US (occurrence: US)
  Receive Date: 20150828
  Receipt Date: 20150828
  Transmission Date: 20151125
  Serious: No
  Sender: FDA-Public Use
  Company Number: US-ROCHE-1238729

PATIENT
  Sex: Female

DRUGS (2)
  1. PEGASYS [Suspect]
     Active Substance: PEGINTERFERON ALFA-2A
     Indication: PRODUCT USED FOR UNKNOWN INDICATION
     Route: 058
  2. RIBASPHERE [Concomitant]
     Active Substance: RIBAVIRIN

REACTIONS (2)
  - Wrong technique in product usage process [Unknown]
  - Intra-abdominal haematoma [Not Recovered/Not Resolved]
